FAERS Safety Report 7993123-1 (Version None)
Quarter: 2011Q4

REPORT INFORMATION
  Report Type: 
  Country: None (occurrence: None)
  Receive Date: 20111219
  Receipt Date: 20110319
  Transmission Date: 20120403
  Serious: No
  Sender: FDA-Public Use
  Company Number: US-ASTRAZENECA-2011SE09943

PATIENT
  Sex: Female

DRUGS (2)
  1. CRESTOR [Suspect]
     Dosage: HALF TABLET TWO TIME A DAY TO MAKE IT TO 10 MG
     Route: 048
  2. CYMBALTA [Suspect]
     Route: 065

REACTIONS (2)
  - DYSGEUSIA [None]
  - DRY MOUTH [None]
